FAERS Safety Report 4588429-2 (Version None)
Quarter: 2005Q1

REPORT INFORMATION
  Report Type: 
  Country: None (occurrence: None)
  Receive Date: 20050216
  Receipt Date: 20050216
  Transmission Date: 20050727
  Serious: Yes (Life-Threatening)
  Sender: FDA-Public Use
  Company Number: None

PATIENT
  Age: 79 Year
  Sex: Male
  Weight: 86.1834 kg

DRUGS (2)
  1. AVELOX [Suspect]
     Indication: BRONCHITIS
     Dosage: AVELOX - 400 MG
     Dates: start: 20050106, end: 20050112
  2. AVELOX [Suspect]
     Indication: SYSTEMIC ANTIBACTERIAL THERAPY
     Dosage: AVELOX - 400 MG
     Dates: start: 20050106, end: 20050112

REACTIONS (1)
  - SUPRAVENTRICULAR TACHYCARDIA [None]
